FAERS Safety Report 16775707 (Version 4)
Quarter: 2019Q4

REPORT INFORMATION
  Report Type: Report from Study
  Country: US (occurrence: US)
  Receive Date: 20190905
  Receipt Date: 20191213
  Transmission Date: 20200122
  Serious: Yes (Hospitalization)
  Sender: FDA-Public Use
  Company Number: US-VELOXIS PHARMACEUTICALS-2019VELUS-000083

PATIENT
  Age: 62 Year
  Sex: Female
  Weight: 78 kg

DRUGS (15)
  1. CELLCEPT [Concomitant]
     Active Substance: MYCOPHENOLATE MOFETIL\MYCOPHENOLATE MOFETIL HYDROCHLORIDE
     Indication: IMMUNOSUPPRESSION
     Dosage: 100 MILLIGRAM
     Route: 048
     Dates: start: 20190729
  2. IMURAN [Concomitant]
     Active Substance: AZATHIOPRINE
     Indication: IMMUNOSUPPRESSION
     Dosage: 150 MG
     Route: 048
     Dates: start: 20190730
  3. BACTRIM [Concomitant]
     Active Substance: SULFAMETHOXAZOLE\TRIMETHOPRIM
     Indication: ANTIFUNGAL PROPHYLAXIS
     Dosage: 400-80 MG
     Route: 048
     Dates: start: 20190709
  4. VALCYTE [Concomitant]
     Active Substance: VALGANCICLOVIR HYDROCHLORIDE
     Indication: ANTIVIRAL PROPHYLAXIS
     Dosage: 450 MG, 3 TIMES/WK
     Route: 065
     Dates: start: 20190709
  5. CARVEDILOL. [Concomitant]
     Active Substance: CARVEDILOL
     Indication: HYPERTENSION
     Dosage: 1250 MILLIGRAM
     Route: 048
     Dates: start: 20190729
  6. NYSTATIN. [Concomitant]
     Active Substance: NYSTATIN
     Indication: ANTIFUNGAL PROPHYLAXIS
     Dosage: 5 ML, QID
     Route: 048
     Dates: start: 20190729
  7. PANTOPRAZOLE SODIUM. [Concomitant]
     Active Substance: PANTOPRAZOLE SODIUM
     Indication: PROPHYLAXIS
     Dosage: 40 MG
     Route: 048
     Dates: start: 20190819
  8. ENVARSUS XR [Suspect]
     Active Substance: TACROLIMUS
     Indication: PROPHYLAXIS AGAINST TRANSPLANT REJECTION
     Dosage: 7 MG
     Route: 048
     Dates: start: 20190710
  9. NYSTATIN. [Concomitant]
     Active Substance: NYSTATIN
     Dosage: 20 ML
     Route: 048
     Dates: start: 20190709
  10. ENVARSUS XR [Suspect]
     Active Substance: TACROLIMUS
     Indication: END STAGE RENAL DISEASE
     Dosage: 5 MG
     Route: 048
  11. ENVARSUS XR [Suspect]
     Active Substance: TACROLIMUS
     Indication: ANTI-GLOMERULAR BASEMENT MEMBRANE DISEASE
  12. CELLCEPT [Concomitant]
     Active Substance: MYCOPHENOLATE MOFETIL\MYCOPHENOLATE MOFETIL HYDROCHLORIDE
     Dosage: UNK
     Route: 065
     Dates: start: 20190816
  13. VANCOMYCIN [Concomitant]
     Active Substance: VANCOMYCIN
     Indication: ANTIBIOTIC PROPHYLAXIS
     Dosage: 125 MILLIGRAM, Q6H
     Route: 048
     Dates: start: 20190729
  14. FAMOTIDINE. [Concomitant]
     Active Substance: FAMOTIDINE
     Indication: ANTIALLERGIC THERAPY
     Dosage: 20 MILLIGRAM, Q12H
     Route: 065
     Dates: start: 20190729
  15. CARVEDILOL. [Concomitant]
     Active Substance: CARVEDILOL
     Dosage: 12.50 MG
     Route: 048
     Dates: start: 20170608

REACTIONS (4)
  - Transplant rejection [Not Recovered/Not Resolved]
  - Vomiting [Recovered/Resolved]
  - Acute kidney injury [Not Recovered/Not Resolved]
  - Nausea [Recovered/Resolved]

NARRATIVE: CASE EVENT DATE: 20190729
